FAERS Safety Report 17516393 (Version 1)
Quarter: 2020Q1

REPORT INFORMATION
  Report Type: Spontaneous
  Country: US (occurrence: US)
  Receive Date: 20200306
  Receipt Date: 20200306
  Transmission Date: 20200409
  Serious: Yes (Hospitalization)
  Sender: FDA-Public Use
  Company Number: None

PATIENT
  Sex: Male

DRUGS (16)
  1. FERROUS FUM [Concomitant]
  2. CELLCEPT [Concomitant]
     Active Substance: MYCOPHENOLATE MOFETIL\MYCOPHENOLATE MOFETIL HYDROCHLORIDE
  3. ZOFRAN [Concomitant]
     Active Substance: ONDANSETRON HYDROCHLORIDE
  4. MYCOPHENOLATE [Suspect]
     Active Substance: MYCOPHENOLIC ACID
     Indication: LIVER TRANSPLANT
     Route: 048
     Dates: start: 20200205
  5. ACYCLOVIR. [Concomitant]
     Active Substance: ACYCLOVIR
  6. BACTRIM [Concomitant]
     Active Substance: SULFAMETHOXAZOLE\TRIMETHOPRIM
  7. MAGNESIUM-OX [Concomitant]
  8. NYSTATIN. [Concomitant]
     Active Substance: NYSTATIN
  9. MELATONIN [Concomitant]
     Active Substance: MELATONIN
  10. PEPCID [Concomitant]
     Active Substance: FAMOTIDINE
  11. AQUADEKS [Concomitant]
     Active Substance: MINERALS\VITAMINS
  12. MULTIPLE VIT [Concomitant]
  13. TACROLIMUS. [Suspect]
     Active Substance: TACROLIMUS
     Indication: LIVER TRANSPLANT
     Route: 048
     Dates: start: 20200205
  14. ASPIRIN. [Concomitant]
     Active Substance: ASPIRIN
  15. ERGOCALCIFER [Concomitant]
  16. PREDNISONE. [Concomitant]
     Active Substance: PREDNISONE

REACTIONS (2)
  - Sleep disorder [None]
  - Seizure [None]
